FAERS Safety Report 20888902 (Version 2)
Quarter: 2022Q3

REPORT INFORMATION
  Report Type: Spontaneous
  Country: CA (occurrence: CA)
  Receive Date: 20220529
  Receipt Date: 20220708
  Transmission Date: 20221027
  Serious: Yes (Other)
  Sender: FDA-Public Use
  Company Number: CA-CELLTRION INC.-2022CA008092

PATIENT

DRUGS (3)
  1. INFLECTRA [Suspect]
     Active Substance: INFLIXIMAB-DYYB
     Indication: Ankylosing spondylitis
     Dosage: 654 MG, WEEKS0,2, 6, THEN Q8WEEKS -NOT YET STARTED
     Route: 042
  2. INFLECTRA [Suspect]
     Active Substance: INFLIXIMAB-DYYB
     Dosage: 654 MG, WEEKS0,2, 6, THEN Q8WEEKS -NOT YET STARTED
     Route: 042
     Dates: start: 20220506
  3. INFLECTRA [Suspect]
     Active Substance: INFLIXIMAB-DYYB
     Dosage: 654 MG, WEEKS0,2, 6, THEN Q8WEEKS -NOT YET STARTED
     Route: 042
     Dates: start: 20220518

REACTIONS (3)
  - Weight increased [Unknown]
  - Off label use [Unknown]
  - Condition aggravated [Recovering/Resolving]

NARRATIVE: CASE EVENT DATE: 20220501
